FAERS Safety Report 5607796-1 (Version None)
Quarter: 2008Q1

REPORT INFORMATION
  Report Type: 
  Country: None (occurrence: None)
  Receive Date: 20080130
  Receipt Date: 20080116
  Transmission Date: 20080703
  Serious: Yes (Hospitalization, Other)
  Sender: FDA-Public Use
  Company Number: US-AMGEN-US261138

PATIENT
  Sex: Female

DRUGS (1)
  1. ENBREL [Suspect]
     Indication: RHEUMATOID ARTHRITIS
     Route: 058
     Dates: start: 20020101

REACTIONS (15)
  - BACTERIAL INFECTION [None]
  - CEREBROVASCULAR ACCIDENT [None]
  - FALL [None]
  - FOOT DEFORMITY [None]
  - MEMORY IMPAIRMENT [None]
  - MENTAL DISORDER [None]
  - MUSCULAR WEAKNESS [None]
  - NECROTISING FASCIITIS [None]
  - OPEN WOUND [None]
  - PERONEAL NERVE PALSY [None]
  - PUPILLARY DISORDER [None]
  - RETINAL DETACHMENT [None]
  - RHEUMATOID ARTHRITIS [None]
  - STREPTOCOCCAL INFECTION [None]
  - STRESS [None]
